FAERS Safety Report 5405352-1 (Version None)
Quarter: 2007Q3

REPORT INFORMATION
  Report Type: 
  Country: None (occurrence: None)
  Receive Date: 20070803
  Receipt Date: 20070716
  Transmission Date: 20080115
  Serious: Yes (Disabling)
  Sender: FDA-Public Use
  Company Number: DE-ASTRAZENECA-2007PK00533

PATIENT
  Age: 65 Year
  Sex: Female
  Weight: 50 kg

DRUGS (3)
  1. FASLODEX [Suspect]
     Indication: BREAST CANCER METASTATIC
  2. FASLODEX [Suspect]
     Indication: METASTASES TO BONE
  3. TAMOXIFEN CITRATE [Concomitant]

REACTIONS (1)
  - DIABETES INSIPIDUS [None]
